FAERS Safety Report 20344323 (Version 2)
Quarter: 2022Q1

REPORT INFORMATION
  Report Type: Report from Study
  Country: US (occurrence: US)
  Receive Date: 20220118
  Receipt Date: 20220124
  Transmission Date: 20220423
  Serious: Yes (Hospitalization)
  Sender: FDA-Public Use
  Company Number: US-GLAXOSMITHKLINE-US2021GSK251258

PATIENT
  Age: 57 Year
  Sex: Female
  Weight: 76.2 kg

DRUGS (17)
  1. BELANTAMAB MAFODOTIN [Suspect]
     Active Substance: BELANTAMAB MAFODOTIN
     Indication: Neoplasm
     Dosage: Q3W
     Route: 042
     Dates: start: 20211202, end: 20211202
  2. ZOVIRAX (ACYCLOVIR) [Concomitant]
     Indication: Product used for unknown indication
     Dosage: 400 MG 2 TIMES DAILY TO BID
     Route: 048
     Dates: start: 20210212
  3. SENOKOT-S [Concomitant]
     Active Substance: DOCUSATE SODIUM\SENNOSIDES
     Indication: Constipation
     Dosage: 1 DF, BID (8.6 MG-50 MG)
     Route: 048
  4. ZYLOPRIM [Concomitant]
     Active Substance: ALLOPURINOL
     Indication: Product used for unknown indication
     Dosage: 1 DF 10 DAYS
     Route: 048
  5. LOMOTIL [Concomitant]
     Active Substance: ATROPINE SULFATE\DIPHENOXYLATE HYDROCHLORIDE
     Indication: Product used for unknown indication
     Dosage: 2.5 MG-0.025 MG PER TABLET
  6. CHOLECALCIFEROL [Concomitant]
     Active Substance: CHOLECALCIFEROL
     Indication: Vitamin supplementation
     Dosage: 1000 IU
  7. NEURONTIN [Concomitant]
     Active Substance: GABAPENTIN
     Indication: Product used for unknown indication
  8. CLARITIN [Concomitant]
     Active Substance: LORATADINE
     Indication: Product used for unknown indication
  9. COZAAR (LOSARTAN) [Concomitant]
     Indication: Product used for unknown indication
  10. ZOFRAN-ODT (ONDANSETRON) [Concomitant]
     Indication: Product used for unknown indication
     Dosage: DISINTERGRATING TABLET
  11. CALCIUM [Concomitant]
     Active Substance: CALCIUM
     Indication: Product used for unknown indication
     Dosage: 1,250 MG CALCIUM CARBONATE PER TABLET
  12. PENTAM [Concomitant]
     Active Substance: PENTAMIDINE ISETHIONATE
     Indication: Product used for unknown indication
     Dosage: INHALATION SOLUTION
  13. K-DUR [Concomitant]
     Active Substance: POTASSIUM CHLORIDE
     Indication: Product used for unknown indication
  14. KLOR-CON M [Concomitant]
     Active Substance: POTASSIUM CHLORIDE
     Indication: Product used for unknown indication
  15. REFRESH PLUS [Concomitant]
     Active Substance: CARBOXYMETHYLCELLULOSE SODIUM
     Indication: Product used for unknown indication
     Dosage: UNK
     Route: 047
  16. SYNTHROID [Concomitant]
     Active Substance: LEVOTHYROXINE SODIUM
     Indication: Product used for unknown indication
  17. ZOMETA INTRAVENOUS [Concomitant]
     Indication: Product used for unknown indication

REACTIONS (3)
  - Tumour lysis syndrome [Unknown]
  - Pyrexia [Unknown]
  - Bone pain [Unknown]

NARRATIVE: CASE EVENT DATE: 20211202
